FAERS Safety Report 9434491 (Version 1)
Quarter: 2013Q3

REPORT INFORMATION
  Report Type: Spontaneous
  Country: US (occurrence: US)
  Receive Date: 20130729
  Receipt Date: 20130729
  Transmission Date: 20140515
  Serious: Yes (Death, Hospitalization)
  Sender: FDA-Public Use
  Company Number: US-20130002

PATIENT
  Age: 64 Year
  Sex: Male

DRUGS (2)
  1. LIPIODOL [Suspect]
     Indication: THERAPEUTIC EMBOLISATION
     Route: 013
  2. WARFARIN (WARFARIN)(WARFARIN) [Concomitant]

REACTIONS (3)
  - Pneumonia [None]
  - Septic shock [None]
  - Off label use [None]
